FAERS Safety Report 4575285-1 (Version None)
Quarter: 2005Q1

REPORT INFORMATION
  Report Type: 
  Country: None (occurrence: None)
  Receive Date: 20050127
  Receipt Date: 20050127
  Transmission Date: 20050727
  Serious: Yes (Life-Threatening)
  Sender: FDA-Public Use
  Company Number: None

PATIENT
  Age: 39 Year
  Sex: Male
  Weight: 81.6475 kg

DRUGS (2)
  1. CRESTOR [Suspect]
     Indication: BLOOD CHOLESTEROL
     Dosage: 10MG, 1 DAY, ORAL
     Route: 048
     Dates: start: 20041129, end: 20050106
  2. CELEXA [Suspect]
     Indication: ANXIETY
     Dosage: 40 MG, 1 DAY, ORAL
     Route: 048
     Dates: start: 20040916, end: 20050106

REACTIONS (5)
  - ARTHRALGIA [None]
  - BLOOD CREATINE PHOSPHOKINASE INCREASED [None]
  - CHROMATURIA [None]
  - MUSCULOSKELETAL STIFFNESS [None]
  - MYALGIA [None]
